FAERS Safety Report 6743798-X (Version None)
Quarter: 2010Q2

REPORT INFORMATION
  Report Type: 
  Country: None (occurrence: None)
  Receive Date: 20100527
  Receipt Date: 20100204
  Transmission Date: 20101027
  Serious: No
  Sender: FDA-Public Use
  Company Number: US-KINGPHARMUSA00001-K201000129

PATIENT
  Sex: Male
  Weight: 83.9 kg

DRUGS (6)
  1. FLECTOR [Suspect]
     Indication: NERVE INJURY
     Dosage: 1/2 PATCH Q 12 HOURS
     Route: 061
     Dates: start: 20100101
  2. DIOVAN HCT [Concomitant]
     Indication: HYPERTENSION
     Dosage: 320-25 MG
  3. KLONOPIN [Concomitant]
     Indication: SLEEP DISORDER
     Dosage: 0.5 UNK, QHS
  4. PEPCID [Concomitant]
     Indication: NAUSEA
     Dosage: 1-2 PER DAY
  5. PEPCID [Concomitant]
     Indication: ABDOMINAL DISCOMFORT
  6. CYMBALTA [Concomitant]
     Indication: DEPRESSION
     Dosage: 60 MG, QHS

REACTIONS (4)
  - ABDOMINAL DISCOMFORT [None]
  - HYPERCHLORHYDRIA [None]
  - NAUSEA [None]
  - SINUS DISORDER [None]
